FAERS Safety Report 15151259 (Version 2)
Quarter: 2018Q3

REPORT INFORMATION
  Report Type: Spontaneous
  Country: US (occurrence: US)
  Receive Date: 20180716
  Receipt Date: 20180719
  Transmission Date: 20181010
  Serious: Yes (Hospitalization)
  Sender: FDA-Public Use
  Company Number: PHHY2018US041349

PATIENT
  Age: 21 Year
  Sex: Female

DRUGS (3)
  1. VALPROIC ACID. [Interacting]
     Active Substance: VALPROIC ACID
     Indication: EPILEPSY
     Route: 065
  2. TOPIRAMATE. [Interacting]
     Active Substance: TOPIRAMATE
     Indication: EPILEPSY
     Route: 065
  3. LEVETIRACETAM. [Suspect]
     Active Substance: LEVETIRACETAM
     Indication: EPILEPSY
     Route: 065

REACTIONS (9)
  - Pneumonia [Unknown]
  - Hypoxia [Unknown]
  - Drug interaction [Unknown]
  - Respiratory failure [Unknown]
  - Cough [Unknown]
  - Hyperammonaemic encephalopathy [Unknown]
  - Tachycardia [Unknown]
  - Confusional state [Unknown]
  - Dyspnoea [Unknown]
